FAERS Safety Report 5423363-7 (Version None)
Quarter: 2007Q3

REPORT INFORMATION
  Report Type: 
  Country: None (occurrence: None)
  Receive Date: 20070727
  Receipt Date: 20070620
  Transmission Date: 20080115
  Serious: No
  Sender: FDA-Public Use
  Company Number: 265107

PATIENT
  Sex: Female

DRUGS (4)
  1. LEVEMIR [Suspect]
     Indication: DIABETES MELLITUS
     Dosage: 14 U, QD, SUBCUTANEOUS, 15 U, QD, SUBCUTANEOUS, 20 U QD, SUBCUTANEOUS
     Route: 058
     Dates: start: 20070601, end: 20070601
  2. LEVEMIR [Suspect]
     Indication: DIABETES MELLITUS
     Dosage: 14 U, QD, SUBCUTANEOUS, 15 U, QD, SUBCUTANEOUS, 20 U QD, SUBCUTANEOUS
     Route: 058
     Dates: start: 20070619, end: 20070601
  3. LEVEMIR [Suspect]
     Indication: DIABETES MELLITUS
     Dosage: 14 U, QD, SUBCUTANEOUS, 15 U, QD, SUBCUTANEOUS, 20 U QD, SUBCUTANEOUS
     Route: 058
     Dates: start: 20070619, end: 20070601
  4. LEVEMIR [Suspect]
     Indication: DIABETES MELLITUS
     Dosage: 14 U, QD, SUBCUTANEOUS, 15 U, QD, SUBCUTANEOUS, 20 U QD, SUBCUTANEOUS
     Route: 058
     Dates: start: 20070601

REACTIONS (1)
  - BLOOD GLUCOSE FLUCTUATION [None]
